FAERS Safety Report 13333349 (Version 1)
Quarter: 2017Q1

REPORT INFORMATION
  Report Type: Spontaneous
  Country: GB (occurrence: GB)
  Receive Date: 20170313
  Receipt Date: 20170313
  Transmission Date: 20170428
  Serious: Yes (Other)
  Sender: FDA-Public Use
  Company Number: GB-BAYER-2017-040396

PATIENT
  Age: 32 Year
  Sex: Male
  Weight: 65.77 kg

DRUGS (2)
  1. CIPROXIN 500 MG [Suspect]
     Active Substance: CIPROFLOXACIN
     Indication: PROSTATITIS
     Dosage: 500 MG, UNK
     Route: 048
     Dates: start: 20161130, end: 20161203
  2. CIPROXIN 500 MG [Suspect]
     Active Substance: CIPROFLOXACIN
     Indication: URINARY TRACT INFECTION

REACTIONS (5)
  - Mental impairment [Recovered/Resolved with Sequelae]
  - Arthralgia [Recovered/Resolved with Sequelae]
  - Tendon pain [Recovered/Resolved with Sequelae]
  - Synovial cyst [Recovered/Resolved with Sequelae]
  - Pain in extremity [Recovered/Resolved with Sequelae]

NARRATIVE: CASE EVENT DATE: 20161201
